FAERS Safety Report 6430475-8 (Version None)
Quarter: 2009Q4

REPORT INFORMATION
  Report Type: 
  Country: None (occurrence: None)
  Receive Date: 20091106
  Receipt Date: 20091029
  Transmission Date: 20100525
  Serious: Yes (Hospitalization)
  Sender: FDA-Public Use
  Company Number: US-ELI_LILLY_AND_COMPANY-US200910007645

PATIENT
  Sex: Female

DRUGS (9)
  1. HUMATROPE [Suspect]
     Dosage: 3.2 MG, DAILY (1/D)
     Dates: start: 20030101
  2. DESMOPRESSIN [Concomitant]
     Dosage: UNK, UNKNOWN
     Route: 065
  3. CORTEF [Concomitant]
     Dosage: UNK, UNKNOWN
     Route: 065
  4. SYNTHROID [Concomitant]
     Dosage: UNK, UNKNOWN
     Route: 065
  5. YAZ [Concomitant]
     Dosage: UNK, UNKNOWN
     Route: 065
  6. LEXAPRO [Concomitant]
     Dosage: UNK, UNKNOWN
     Route: 065
  7. ALTACE [Concomitant]
     Dosage: UNK, UNKNOWN
     Route: 065
  8. CRESTOR [Concomitant]
     Dosage: UNK, UNKNOWN
     Route: 065
  9. ADDERALL 10 [Concomitant]
     Dosage: UNK, UNKNOWN
     Route: 065

REACTIONS (1)
  - DEPRESSION [None]
